APPROVED DRUG PRODUCT: CALCITRIOL
Active Ingredient: CALCITRIOL
Strength: 0.001MG/ML
Dosage Form/Route: INJECTABLE;INJECTION
Application: A077102 | Product #001
Applicant: SAGENT PHARMACEUTICALS INC
Approved: Feb 8, 2006 | RLD: No | RS: No | Type: DISCN